FAERS Safety Report 6089077-8 (Version None)
Quarter: 2009Q1

REPORT INFORMATION
  Report Type: 
  Country: None (occurrence: None)
  Receive Date: 20090219
  Receipt Date: 20090210
  Transmission Date: 20090719
  Serious: Yes (Hospitalization)
  Sender: FDA-Public Use
  Company Number: ENT-2009-0019

PATIENT
  Sex: Female

DRUGS (2)
  1. COMTAN [Suspect]
     Indication: THERAPEUTIC RESPONSE DECREASED
     Dosage: 300 MG DAILY ORAL, 150 MG/DAY ORAL
     Route: 048
     Dates: end: 20090204
  2. MADOPAR [Concomitant]

REACTIONS (5)
  - DEPRESSION [None]
  - DIZZINESS [None]
  - FALL [None]
  - NAUSEA [None]
  - RETCHING [None]
